FAERS Safety Report 16390063 (Version 3)
Quarter: 2019Q3

REPORT INFORMATION
  Report Type: Spontaneous
  Country: PT (occurrence: PT)
  Receive Date: 20190604
  Receipt Date: 20190806
  Transmission Date: 20191004
  Serious: Yes (Death, Other)
  Sender: FDA-Public Use
  Company Number: PHHY2019PT127567

PATIENT
  Age: 45 Year
  Sex: Female

DRUGS (27)
  1. LETROZOLE. [Suspect]
     Active Substance: LETROZOLE
     Indication: HORMONE THERAPY
  2. EVEROLIMUS. [Suspect]
     Active Substance: EVEROLIMUS
     Indication: METASTASES TO LIVER
  3. CARBOPLATIN. [Suspect]
     Active Substance: CARBOPLATIN
     Indication: HUMAN EPIDERMAL GROWTH FACTOR RECEPTOR NEGATIVE
  4. PACLITAXEL. [Suspect]
     Active Substance: PACLITAXEL
     Indication: HORMONE THERAPY
  5. PALBOCICLIB [Suspect]
     Active Substance: PALBOCICLIB
     Indication: INVASIVE DUCTAL BREAST CARCINOMA
     Dosage: 100 MG, QD FOR 21 DAYS
     Route: 065
  6. PALBOCICLIB [Suspect]
     Active Substance: PALBOCICLIB
     Indication: HORMONE THERAPY
  7. DOCETAXEL. [Suspect]
     Active Substance: DOCETAXEL
     Indication: CHEMOTHERAPY
     Route: 065
  8. LETROZOLE. [Suspect]
     Active Substance: LETROZOLE
     Indication: INVASIVE DUCTAL BREAST CARCINOMA
     Dosage: UNK
     Route: 065
  9. LETROZOLE. [Suspect]
     Active Substance: LETROZOLE
     Indication: HUMAN EPIDERMAL GROWTH FACTOR RECEPTOR NEGATIVE
  10. EXEMESTANE. [Suspect]
     Active Substance: EXEMESTANE
     Indication: HORMONE THERAPY
  11. CARBOPLATIN. [Suspect]
     Active Substance: CARBOPLATIN
     Indication: INVASIVE DUCTAL BREAST CARCINOMA
     Dosage: UNK
     Route: 065
  12. PACLITAXEL. [Suspect]
     Active Substance: PACLITAXEL
     Indication: INVASIVE DUCTAL BREAST CARCINOMA
     Dosage: UNK
     Route: 065
  13. PACLITAXEL. [Suspect]
     Active Substance: PACLITAXEL
     Indication: HUMAN EPIDERMAL GROWTH FACTOR RECEPTOR NEGATIVE
  14. PALBOCICLIB [Suspect]
     Active Substance: PALBOCICLIB
     Indication: BREAST CANCER METASTATIC
     Dosage: UNK
     Route: 048
  15. EXEMESTANE. [Suspect]
     Active Substance: EXEMESTANE
     Indication: METASTASES TO LIVER
  16. FULVESTRANT. [Suspect]
     Active Substance: FULVESTRANT
     Indication: INVASIVE DUCTAL BREAST CARCINOMA
     Dosage: UNK
     Route: 030
  17. EVEROLIMUS. [Suspect]
     Active Substance: EVEROLIMUS
     Indication: INVASIVE DUCTAL BREAST CARCINOMA
     Dosage: UNK
     Route: 065
  18. EVEROLIMUS. [Suspect]
     Active Substance: EVEROLIMUS
     Indication: HORMONE THERAPY
  19. CARBOPLATIN. [Suspect]
     Active Substance: CARBOPLATIN
     Indication: CHEMOTHERAPY
  20. FULVESTRANT. [Suspect]
     Active Substance: FULVESTRANT
     Indication: BREAST CANCER METASTATIC
  21. EVEROLIMUS. [Suspect]
     Active Substance: EVEROLIMUS
     Indication: HUMAN EPIDERMAL GROWTH FACTOR RECEPTOR NEGATIVE
  22. FULVESTRANT. [Suspect]
     Active Substance: FULVESTRANT
     Indication: HORMONE THERAPY
  23. PALBOCICLIB [Suspect]
     Active Substance: PALBOCICLIB
     Indication: HUMAN EPIDERMAL GROWTH FACTOR RECEPTOR NEGATIVE
  24. EXEMESTANE. [Suspect]
     Active Substance: EXEMESTANE
     Indication: INVASIVE DUCTAL BREAST CARCINOMA
     Dosage: UNK
     Route: 065
  25. EXEMESTANE. [Suspect]
     Active Substance: EXEMESTANE
     Indication: HUMAN EPIDERMAL GROWTH FACTOR RECEPTOR NEGATIVE
  26. FULVESTRANT. [Suspect]
     Active Substance: FULVESTRANT
     Indication: HUMAN EPIDERMAL GROWTH FACTOR RECEPTOR NEGATIVE
  27. CARBOPLATIN. [Suspect]
     Active Substance: CARBOPLATIN
     Indication: HORMONE THERAPY

REACTIONS (13)
  - Neutropenia [Unknown]
  - Therapeutic response decreased [Unknown]
  - Haematotoxicity [Recovered/Resolved]
  - Metastasis [Unknown]
  - Drug intolerance [Unknown]
  - Hepatic failure [Fatal]
  - Sepsis [Recovering/Resolving]
  - Cancer pain [Unknown]
  - Metastases to liver [Unknown]
  - Thrombocytopenia [Recovering/Resolving]
  - Off label use [Unknown]
  - Invasive ductal breast carcinoma [Unknown]
  - Malignant neoplasm progression [Unknown]

NARRATIVE: CASE EVENT DATE: 201612
